FAERS Safety Report 5802362-7 (Version None)
Quarter: 2008Q3

REPORT INFORMATION
  Report Type: 
  Country: None (occurrence: None)
  Receive Date: 20080702
  Receipt Date: 20080624
  Transmission Date: 20090109
  Serious: Yes (Other)
  Sender: FDA-Public Use
  Company Number: 028-20785-04070512

PATIENT
  Age: 48 Year
  Sex: Female

DRUGS (9)
  1. THALOMID [Suspect]
     Indication: MULTIPLE MYELOMA
     Dosage: 400 MG, 8 IN 1 D, ORAL; 400 MG, DAILY, ORAL; 200 MG, 4 IN 1 D, ORAL; 200 MG, 4 IN 1 D, ORAL
     Route: 048
     Dates: end: 20040701
  2. THALOMID [Suspect]
     Indication: MULTIPLE MYELOMA
     Dosage: 400 MG, 8 IN 1 D, ORAL; 400 MG, DAILY, ORAL; 200 MG, 4 IN 1 D, ORAL; 200 MG, 4 IN 1 D, ORAL
     Route: 048
     Dates: start: 20040701
  3. THALOMID [Suspect]
     Indication: MULTIPLE MYELOMA
     Dosage: 400 MG, 8 IN 1 D, ORAL; 400 MG, DAILY, ORAL; 200 MG, 4 IN 1 D, ORAL; 200 MG, 4 IN 1 D, ORAL
     Route: 048
     Dates: start: 20050101
  4. THALOMID [Suspect]
     Indication: MULTIPLE MYELOMA
     Dosage: 400 MG, 8 IN 1 D, ORAL; 400 MG, DAILY, ORAL; 200 MG, 4 IN 1 D, ORAL; 200 MG, 4 IN 1 D, ORAL
     Route: 048
     Dates: start: 20070101
  5. THALOMID [Suspect]
  6. THALOMID [Suspect]
  7. THALOMID [Suspect]
  8. THALOMID [Suspect]
  9. PAMIDRONATE DISODIUM [Concomitant]

REACTIONS (1)
  - BLOOD HUMAN CHORIONIC GONADOTROPIN INCREASED [None]
